FAERS Safety Report 26164025 (Version 1)
Quarter: 2025Q4

REPORT INFORMATION
  Report Type: Spontaneous
  Country: US (occurrence: US)
  Receive Date: 20251216
  Receipt Date: 20251216
  Transmission Date: 20260117
  Serious: No
  Sender: TEVA
  Company Number: US-TEVA-VS-3401589

PATIENT
  Age: 73 Year
  Sex: Male

DRUGS (1)
  1. AUSTEDO [Suspect]
     Active Substance: DEUTETRABENAZINE
     Indication: Huntington^s disease
     Dosage: 2 9MG TABLETS TWICE DAILY / 1 12MG TABLET TWICE DAILY
     Route: 048

REACTIONS (4)
  - Nasopharyngitis [Recovering/Resolving]
  - Influenza [Unknown]
  - Bedridden [Unknown]
  - Cough [Unknown]
